FAERS Safety Report 14162060 (Version 1)
Quarter: 2017Q4

REPORT INFORMATION
  Report Type: Spontaneous
  Country: US (occurrence: US)
  Receive Date: 20171106
  Receipt Date: 20171106
  Transmission Date: 20180321
  Serious: Yes (Other)
  Sender: FDA-Public Use
  Company Number: US-EGALET US INC-US-2017EGA000748

PATIENT
  Age: 59 Year
  Sex: Female
  Weight: 113.38 kg

DRUGS (1)
  1. ARYMO ER [Suspect]
     Active Substance: MORPHINE SULFATE
     Indication: POST LAMINECTOMY SYNDROME
     Dosage: 5 DF, (TWO TABLETS IN THE MORNING, ONE TABLET MID-DAY, AND TWO TABLETS IN THE EVENING)
     Route: 048
     Dates: start: 20170722, end: 20170727

REACTIONS (3)
  - Euphoric mood [Recovering/Resolving]
  - Lethargy [Recovering/Resolving]
  - Malaise [Recovering/Resolving]

NARRATIVE: CASE EVENT DATE: 201707
